FAERS Safety Report 7390285-4 (Version None)
Quarter: 2011Q2

REPORT INFORMATION
  Report Type: 
  Country: None (occurrence: None)
  Receive Date: 20110401
  Receipt Date: 20110330
  Transmission Date: 20111010
  Serious: No
  Sender: FDA-Public Use
  Company Number: US-TEVA-273457USA

PATIENT
  Age: 25 Year
  Sex: Female
  Weight: 86.26 kg

DRUGS (2)
  1. PLAN B ONE-STEP [Suspect]
     Indication: POST COITAL CONTRACEPTION
     Route: 048
     Dates: start: 20110321, end: 20110321
  2. MULTIVITAMIN [Concomitant]
     Indication: VITAMIN SUPPLEMENTATION

REACTIONS (7)
  - MENSTRUATION IRREGULAR [None]
  - DYSPEPSIA [None]
  - FATIGUE [None]
  - BREAST PAIN [None]
  - NECK PAIN [None]
  - PELVIC PAIN [None]
  - DIZZINESS [None]
